FAERS Safety Report 9295510 (Version 1)
Quarter: 2013Q2

REPORT INFORMATION
  Report Type: Spontaneous
  Country: US (occurrence: None)
  Receive Date: 20130516
  Receipt Date: 20130516
  Transmission Date: 20140414
  Serious: Yes (Hospitalization)
  Sender: FDA-Public Use
  Company Number: None

PATIENT
  Age: 50 Year
  Sex: Male
  Weight: 105 kg

DRUGS (1)
  1. BEVACIZUMAB [Suspect]
     Dates: start: 20130312, end: 20130507

REACTIONS (4)
  - Metastatic renal cell carcinoma [None]
  - Small intestine carcinoma [None]
  - Metastasis [None]
  - Small intestinal haemorrhage [None]
